FAERS Safety Report 14578355 (Version 4)
Quarter: 2018Q2

REPORT INFORMATION
  Report Type: Report from Study
  Country: GB (occurrence: GB)
  Receive Date: 20180227
  Receipt Date: 20180607
  Transmission Date: 20180711
  Serious: Yes (Other)
  Sender: FDA-Public Use
  Company Number: PHHY2017GB176359

PATIENT
  Sex: Male

DRUGS (2)
  1. TOBI [Suspect]
     Active Substance: TOBRAMYCIN
     Indication: PRODUCT USED FOR UNKNOWN INDICATION
     Dosage: 300 MG, BID
     Route: 065
     Dates: start: 20120101
  2. AMPHOTERICIN B. [Suspect]
     Active Substance: AMPHOTERICIN B
     Indication: CYSTIC FIBROSIS
     Dosage: 5 MG, BID
     Route: 055
     Dates: start: 201208, end: 201711

REACTIONS (4)
  - Product use issue [Unknown]
  - Cystic fibrosis [Unknown]
  - Condition aggravated [Unknown]
  - Product use in unapproved indication [Unknown]
